FAERS Safety Report 9246093 (Version 1)
Quarter: 2013Q2

REPORT INFORMATION
  Report Type: Report from Study
  Country: CN (occurrence: CN)
  Receive Date: 20130422
  Receipt Date: 20130422
  Transmission Date: 20140414
  Serious: Yes (Other)
  Sender: FDA-Public Use
  Company Number: CN-ROCHE-1216615

PATIENT
  Age: 57 Year
  Sex: Female

DRUGS (2)
  1. PEGASYS [Suspect]
     Indication: HEPATITIS C
     Route: 058
     Dates: start: 201205, end: 201210
  2. PEGASYS [Suspect]
     Route: 058
     Dates: start: 201210, end: 201303

REACTIONS (1)
  - Blood creatine phosphokinase increased [Recovering/Resolving]
